FAERS Safety Report 7658900-5 (Version None)
Quarter: 2011Q3

REPORT INFORMATION
  Report Type: 
  Country: None (occurrence: None)
  Receive Date: 20110802
  Receipt Date: 20110719
  Transmission Date: 20111222
  Serious: Yes (Other)
  Sender: FDA-Public Use
  Company Number: US-1187151

PATIENT
  Age: 50 Year
  Sex: Female

DRUGS (7)
  1. ACCOLATE [Concomitant]
  2. ZYRTEC [Concomitant]
  3. COUMADIN [Concomitant]
  4. PATADAY [Suspect]
     Dosage: (OPHTHALMIC)
     Route: 047
  5. DIAVAN [Concomitant]
  6. LASIX [Concomitant]
  7. ZANTAC [Concomitant]

REACTIONS (5)
  - EYE IRRITATION [None]
  - ANAPHYLACTIC REACTION [None]
  - OCULAR HYPERAEMIA [None]
  - DRY EYE [None]
  - EYELID MARGIN CRUSTING [None]
